FAERS Safety Report 10028188 (Version 3)
Quarter: 2014Q2

REPORT INFORMATION
  Report Type: Spontaneous
  Country: US (occurrence: None)
  Receive Date: 20140319
  Receipt Date: 20140515
  Transmission Date: 20141212
  Serious: Yes (Hospitalization, Other)
  Sender: FDA-Public Use
  Company Number: ADR-2014-00429

PATIENT
  Age: 59 Year
  Sex: Male

DRUGS (15)
  1. BACLOFEN INTRATHECAL 333 MG/ML [Suspect]
     Indication: PAIN
  2. MORPHINE INTRATHECAL 2 MG/ML [Suspect]
  3. FENTANYL [Suspect]
  4. BUPIVACAINE INTRATHECAL [Suspect]
  5. TESTOSTERONE CYPIONATE [Suspect]
  6. BACLOFEN [Suspect]
  7. OXYCODONE HCL [Suspect]
     Dosage: 1-2 TAB SIX HOURS FOR PAIN
  8. MORPHINE SULPHATE [Suspect]
  9. PROMETHAZINE HCL [Suspect]
     Dosage: PRN, NAUSEA
  10. WELLBUTRIN SR [Suspect]
  11. CLONAZEPAM 0.5 MG TABLET [Suspect]
  12. GABAPENTIN [Suspect]
     Dosage: EVERY 4-6 HOURS AS NEEDED FOR PAIN
  13. MULTAQ [Suspect]
     Dosage: WITH MORNING AND EVENING MEALS
  14. PRADAXA [Suspect]
  15. RITALIN [Suspect]

REACTIONS (8)
  - Device breakage [None]
  - Device leakage [None]
  - Back pain [None]
  - Burning sensation [None]
  - Pain [None]
  - Spinal disorder [None]
  - Device breakage [None]
  - Therapeutic response decreased [None]
